FAERS Safety Report 7424849 (Version 3)
Quarter: 2012Q4

REPORT INFORMATION
  Report Type: 
  Country: GB (occurrence: GB)
  Receive Date: 20100618
  Receipt Date: 20121120
  Transmission Date: 20130627
  Serious: Yes (Hospitalization)
  Sender: FDA-Public Use
  Company Number: PHFR2010GB00896

PATIENT
  Age: 35 Year
  Sex: Male
  Weight: 122 kg

DRUGS (4)
  1. CLOZARIL [Suspect]
     Indication: SCHIZOPHRENIA
     Dosage: 550 mg, QD
     Route: 048
     Dates: start: 20060621
  2. LANSOPRAZOLE [Concomitant]
     Dosage: 30 UNK, UNK
     Route: 048
  3. OMACOR                             /01403701/ [Concomitant]
     Dosage: 1 g, UNK
     Route: 048
  4. VENLAFAXINE [Concomitant]
     Dosage: 15 mg, UNK
     Route: 048

REACTIONS (4)
  - Anal abscess [Recovered/Resolved]
  - Groin abscess [Recovered/Resolved]
  - Cellulitis [Unknown]
  - Glucose tolerance impaired [Unknown]
